FAERS Safety Report 5125932-0 (Version None)
Quarter: 2006Q3

REPORT INFORMATION
  Report Type: 
  Country: None (occurrence: None)
  Receive Date: 20060818
  Receipt Date: 20050906
  Transmission Date: 20061208
  Serious: Yes (Hospitalization)
  Sender: FDA-Public Use
  Company Number: 417103

PATIENT
  Age: 54 Year
  Sex: Female

DRUGS (2)
  1. CYTOVENE IV [Suspect]
     Indication: CYTOMEGALOVIRUS INFECTION
     Dosage: INTRAVENOUS
     Route: 042
     Dates: start: 19900615, end: 19960615
  2. CYTOVENE [Suspect]
     Indication: CYTOMEGALOVIRUS CHORIORETINITIS
     Dosage: ORAL
     Route: 048
     Dates: start: 19960615

REACTIONS (1)
  - RENAL FAILURE [None]
